FAERS Safety Report 24253080 (Version 1)
Quarter: 2024Q3

REPORT INFORMATION
  Report Type: Spontaneous
  Country: ES (occurrence: ES)
  Receive Date: 20240827
  Receipt Date: 20240827
  Transmission Date: 20241017
  Serious: Yes (Hospitalization, Other)
  Sender: CHEPLAPHARM
  Company Number: None

PATIENT
  Age: 54 Year
  Sex: Male
  Weight: 118.59 kg

DRUGS (3)
  1. OLANZAPINE [Interacting]
     Active Substance: OLANZAPINE
     Indication: Schizoaffective disorder
     Dosage: 20MG EVERY 24 HOURS?28 COMPRESSED?0-0-1 ?DAILY DOSE: 20 MILLIGRAM
     Route: 048
     Dates: start: 20120203, end: 20240731
  2. PALIPERIDONE PALMITATE [Interacting]
     Active Substance: PALIPERIDONE PALMITATE
     Indication: Schizoaffective disorder
     Dosage: 100MG EVERY 28 DAYS START OF TREATMENT 23/07/2023?SUSPENSION ?INJECTABLE EXTENDED RELEASE ?PROLO...
     Route: 030
     Dates: start: 20230725, end: 20240712
  3. Clonazepam biomed [Concomitant]
     Indication: Schizoaffective disorder
     Dosage: 2MG EVERY 12 HOURS?60 COMPRESSED?DAILY DOSE: 4 MILLIGRAM
     Route: 048
     Dates: start: 20230728, end: 20240731

REACTIONS (8)
  - Hyperthermia [Recovered/Resolved]
  - Rhabdomyolysis [Recovering/Resolving]
  - Acute kidney injury [Recovered/Resolved]
  - Neuroleptic malignant syndrome [Recovered/Resolved]
  - Acute hepatic failure [Unknown]
  - Meningitis [Unknown]
  - Movement disorder [Unknown]
  - Social problem [Unknown]

NARRATIVE: CASE EVENT DATE: 20240731
